FAERS Safety Report 16867653 (Version 1)
Quarter: 2019Q4

REPORT INFORMATION
  Report Type: Spontaneous
  Country: US (occurrence: US)
  Receive Date: 20190929
  Receipt Date: 20190929
  Transmission Date: 20200122
  Serious: Yes (Other)
  Sender: FDA-Public Use
  Company Number: None

PATIENT
  Age: 16 Year
  Sex: Female
  Weight: 44 kg

DRUGS (4)
  1. KYLEENA [Suspect]
     Active Substance: LEVONORGESTREL
  2. HAIR SKIN AND NAIL VITAMINS [Concomitant]
  3. OTC IBUPROFEN [Concomitant]
  4. PEPTO TABLETS [Concomitant]

REACTIONS (3)
  - Nausea [None]
  - Vomiting [None]
  - Fatigue [None]

NARRATIVE: CASE EVENT DATE: 20190928
